FAERS Safety Report 13291879 (Version 1)
Quarter: 2017Q1

REPORT INFORMATION
  Report Type: Spontaneous
  Country: IT (occurrence: IT)
  Receive Date: 20170303
  Receipt Date: 20170303
  Transmission Date: 20170428
  Serious: Yes (Hospitalization)
  Sender: FDA-Public Use
  Company Number: IT-GLAXOSMITHKLINE-IT2017GSK028621

PATIENT
  Age: 61 Year
  Sex: Female

DRUGS (5)
  1. LAMICTAL [Suspect]
     Active Substance: LAMOTRIGINE
     Indication: COGNITIVE DISORDER
     Dosage: 250 MG, QD
     Route: 048
     Dates: start: 20160925, end: 20160925
  2. SEREUPIN [Concomitant]
     Active Substance: PAROXETINE HYDROCHLORIDE
     Dosage: 1 DF, QD
  3. EUTIROX [Concomitant]
     Active Substance: LEVOTHYROXINE SODIUM
     Dosage: 50 UNK, QD
  4. DEPAKIN [Concomitant]
     Active Substance: VALPROATE SODIUM
     Dosage: 300 MG, QD
     Route: 048
  5. ADALAT CRONO [Concomitant]
     Active Substance: NIFEDIPINE
     Dosage: 3 DF, QD

REACTIONS (4)
  - Headache [Unknown]
  - Balance disorder [Unknown]
  - Posture abnormal [Unknown]
  - Fall [Unknown]

NARRATIVE: CASE EVENT DATE: 20160925
